FAERS Safety Report 24435238 (Version 1)
Quarter: 2024Q4

REPORT INFORMATION
  Report Type: Report from Study
  Country: KR (occurrence: KR)
  Receive Date: 20241015
  Receipt Date: 20241015
  Transmission Date: 20250114
  Serious: Yes (Death, Other)
  Sender: JOHNSON AND JOHNSON
  Company Number: KR-LAT-24102034712889Em

PATIENT

DRUGS (4)
  1. SIMPONI [Suspect]
     Active Substance: GOLIMUMAB
     Indication: Rheumatoid arthritis
     Route: 058
  2. SIMPONI [Suspect]
     Active Substance: GOLIMUMAB
     Indication: Interstitial lung disease
  3. REMICADE [Suspect]
     Active Substance: INFLIXIMAB
     Indication: Interstitial lung disease
     Route: 041
  4. REMICADE [Suspect]
     Active Substance: INFLIXIMAB
     Indication: Rheumatoid arthritis

REACTIONS (18)
  - Lymphoma [Fatal]
  - Cardiac failure congestive [Fatal]
  - Atypical mycobacterial infection [Fatal]
  - Pneumocystis jirovecii infection [Fatal]
  - Infection [Fatal]
  - Neoplasm malignant [Fatal]
  - Acute coronary syndrome [Fatal]
  - Adverse drug reaction [Fatal]
  - Hepatitis B reactivation [Unknown]
  - Tuberculosis [Unknown]
  - Neutropenia [Unknown]
  - Pulmonary embolism [Unknown]
  - Herpes zoster [Unknown]
  - Hypertransaminasaemia [Unknown]
  - Psoriasis [Unknown]
  - Infusion related reaction [Unknown]
  - Infertility [Unknown]
  - Drug ineffective [Unknown]
